FAERS Safety Report 5306425-4 (Version None)
Quarter: 2007Q2

REPORT INFORMATION
  Report Type: 
  Country: None (occurrence: None)
  Receive Date: 20070417
  Receipt Date: 20070404
  Transmission Date: 20071010
  Serious: Yes (Hospitalization)
  Sender: FDA-Public Use
  Company Number: B0466222A

PATIENT
  Age: 54 Year
  Sex: Male

DRUGS (2)
  1. AMOXIL [Suspect]
     Indication: TOOTH DISORDER
     Dosage: 375 MG/THREE TIMES PER DAY/
  2. XYLOMETAZOLINE [Concomitant]

REACTIONS (3)
  - DRUG EFFECT DECREASED [None]
  - DRUG HYPERSENSITIVITY [None]
  - EXCORIATION [None]
